FAERS Safety Report 12488701 (Version 1)
Quarter: 2016Q2

REPORT INFORMATION
  Report Type: Spontaneous
  Country: NO (occurrence: NO)
  Receive Date: 20160622
  Receipt Date: 20160622
  Transmission Date: 20160815
  Serious: Yes (Other)
  Sender: FDA-Public Use
  Company Number: NO-AMGEN-NORSP2016077695

PATIENT
  Age: 77 Year
  Sex: Male

DRUGS (10)
  1. SOBRIL [Concomitant]
     Active Substance: OXAZEPAM
     Dosage: UNK
  2. ATARAX [Concomitant]
     Active Substance: HYDROXYZINE\HYDROXYZINE HYDROCHLORIDE
     Dosage: UNK, UNK
  3. OXYCONTIN [Concomitant]
     Active Substance: OXYCODONE HYDROCHLORIDE
     Dosage: UNK
  4. AFIPRAN [Concomitant]
     Active Substance: METOCLOPRAMIDE HYDROCHLORIDE
     Dosage: UNK, UNK
  5. XGEVA [Suspect]
     Active Substance: DENOSUMAB
     Indication: PROSTATE CANCER METASTATIC
     Dosage: UNK
     Route: 058
     Dates: start: 2012, end: 201405
  6. CALCIGRAN FORTE [Concomitant]
     Dosage: UNK
     Route: 048
  7. OMEPRAZOLE. [Concomitant]
     Active Substance: OMEPRAZOLE
     Dosage: UNK
  8. PARACET [Concomitant]
     Active Substance: ACETAMINOPHEN
     Dosage: UNK
  9. PREDNISOLON [Concomitant]
     Active Substance: PREDNISOLONE
     Dosage: UNK
  10. FIRMAGON [Concomitant]
     Active Substance: DEGARELIX ACETATE
     Dosage: UNK
     Route: 051

REACTIONS (2)
  - Osteitis [Unknown]
  - Osteonecrosis of jaw [Unknown]

NARRATIVE: CASE EVENT DATE: 201406
